FAERS Safety Report 13123486 (Version 2)
Quarter: 2017Q1

REPORT INFORMATION
  Report Type: Report from Study
  Country: None (occurrence: AT)
  Receive Date: 20170117
  Receipt Date: 20170202
  Transmission Date: 20170428
  Serious: Yes (Hospitalization)
  Sender: FDA-Public Use
  Company Number: AT-ABBVIE-16P-009-1615079-00

PATIENT
  Age: 79 Year
  Sex: Male

DRUGS (4)
  1. NOVALGIN [Concomitant]
     Active Substance: METAMIZOLE SODIUM
     Indication: PRODUCT USED FOR UNKNOWN INDICATION
     Dates: start: 20170112, end: 20170116
  2. UNASYN [Concomitant]
     Active Substance: AMPICILLIN SODIUM\SULBACTAM SODIUM
     Indication: PRODUCT USED FOR UNKNOWN INDICATION
     Dates: start: 20170112, end: 20170125
  3. DUODOPA [Suspect]
     Active Substance: CARBIDOPA\LEVODOPA
     Dosage: 16H THERAPY: FROM 07.00 A.M. UNTIL 11:00 P.M.?MD: 9.3ML, ED: 2.3ML, CR:3.0ML/H
     Route: 050
  4. DUODOPA [Suspect]
     Active Substance: CARBIDOPA\LEVODOPA
     Indication: PARKINSON^S DISEASE
     Dosage: MD: 9.3 ML, CR: 3.1 ML/H, ED: 2.3 ML
     Route: 050
     Dates: start: 20140226

REACTIONS (6)
  - Stoma site haemorrhage [Unknown]
  - Device alarm issue [Unknown]
  - Stoma site discharge [Unknown]
  - Haemoptysis [Recovered/Resolved]
  - Pneumonia [Not Recovered/Not Resolved]
  - Stoma site hypergranulation [Not Recovered/Not Resolved]

NARRATIVE: CASE EVENT DATE: 20170112
